FAERS Safety Report 4515175-3 (Version None)
Quarter: 2004Q4

REPORT INFORMATION
  Report Type: 
  Country: None (occurrence: None)
  Receive Date: 20041129
  Receipt Date: 20041129
  Transmission Date: 20050328
  Serious: Yes (Other)
  Sender: FDA-Public Use
  Company Number: None

PATIENT
  Age: 52 Year
  Sex: Female

DRUGS (1)
  1. MALARONE [Suspect]
     Indication: DRUG HYPERSENSITIVITY
     Dosage: DAILY

REACTIONS (3)
  - BLISTER [None]
  - RASH MACULO-PAPULAR [None]
  - SKIN WARM [None]
